FAERS Safety Report 24802446 (Version 2)
Quarter: 2025Q1

REPORT INFORMATION
  Report Type: Spontaneous
  Country: US (occurrence: US)
  Receive Date: 20250103
  Receipt Date: 20250307
  Transmission Date: 20250409
  Serious: No
  Sender: SANOFI AVENTIS
  Company Number: US-SA-2025SA001670

PATIENT
  Age: 32 Year
  Sex: Female

DRUGS (2)
  1. DUPIXENT [Suspect]
     Active Substance: DUPILUMAB
     Indication: Eczema
     Route: 058
     Dates: start: 20241114, end: 20241114
  2. DUPIXENT [Suspect]
     Active Substance: DUPILUMAB
     Indication: Dermatitis atopic
     Dosage: 300 MG, Q15D
     Route: 058
     Dates: start: 20241129

REACTIONS (4)
  - Influenza [Recovered/Resolved]
  - Oropharyngeal pain [Recovered/Resolved]
  - Conjunctivitis [Unknown]
  - Eye pruritus [Unknown]

NARRATIVE: CASE EVENT DATE: 20241222
